FAERS Safety Report 19245197 (Version 2)
Quarter: 2021Q4

REPORT INFORMATION
  Report Type: Spontaneous
  Country: GB (occurrence: GB)
  Receive Date: 20210512
  Receipt Date: 20211125
  Transmission Date: 20220304
  Serious: Yes (Life-Threatening, Hospitalization, Disabling, Other)
  Sender: FDA-Public Use
  Company Number: None

PATIENT
  Age: 67 Year
  Sex: Female
  Weight: 95.25 kg

DRUGS (2)
  1. VICTOZA [Suspect]
     Active Substance: LIRAGLUTIDE
     Indication: Type 2 diabetes mellitus
     Dosage: 12 ML
     Route: 051
     Dates: start: 20150908, end: 20151115
  2. GLICLAZIDE [Concomitant]
     Active Substance: GLICLAZIDE
     Indication: Ill-defined disorder
     Dosage: UNK

REACTIONS (7)
  - Cerebrovascular accident [Recovering/Resolving]
  - Eructation [Unknown]
  - Diarrhoea [Unknown]
  - Medication error [Unknown]
  - Balance disorder [Unknown]
  - Hypoaesthesia [Unknown]
  - Amnesia [Unknown]

NARRATIVE: CASE EVENT DATE: 20150910
